FAERS Safety Report 16916319 (Version 1)
Quarter: 2019Q4

REPORT INFORMATION
  Report Type: Spontaneous
  Country: FR (occurrence: FR)
  Receive Date: 20191014
  Receipt Date: 20191014
  Transmission Date: 20200122
  Serious: Yes (Hospitalization)
  Sender: FDA-Public Use
  Company Number: FR-JNJFOC-20191006071

PATIENT
  Age: 53 Year
  Sex: Female
  Weight: 74 kg

DRUGS (5)
  1. LORAZEPAM. [Suspect]
     Active Substance: LORAZEPAM
     Indication: DEPRESSION
     Route: 048
     Dates: start: 20190829, end: 20190904
  2. LEPTICUR [Concomitant]
     Active Substance: TROPATEPINE HYDROCHLORIDE
     Indication: PROPHYLAXIS
     Route: 048
     Dates: start: 201804, end: 20190904
  3. XEPLION [Suspect]
     Active Substance: PALIPERIDONE PALMITATE
     Indication: PSYCHOTIC DISORDER
     Dosage: 100 MG
     Route: 030
     Dates: start: 20180613
  4. MIANSERINE [Concomitant]
     Active Substance: MIANSERIN HYDROCHLORIDE
     Indication: DEPRESSION
     Route: 048
     Dates: start: 20190521
  5. TERALITHE [Concomitant]
     Active Substance: LITHIUM CARBONATE
     Indication: PSYCHOTIC DISORDER
     Route: 048
     Dates: start: 20190709

REACTIONS (1)
  - Pulmonary embolism [Recovered/Resolved]

NARRATIVE: CASE EVENT DATE: 20190904
